FAERS Safety Report 20244091 (Version 2)
Quarter: 2022Q1

REPORT INFORMATION
  Report Type: Report from Study
  Country: PR (occurrence: PR)
  Receive Date: 20211229
  Receipt Date: 20220302
  Transmission Date: 20220423
  Serious: Yes (Hospitalization)
  Sender: FDA-Public Use
  Company Number: PR-BIOGEN-2021BI01078964

PATIENT
  Age: 60 Year
  Sex: Female
  Weight: 72.640 kg

DRUGS (2)
  1. TECFIDERA [Suspect]
     Active Substance: DIMETHYL FUMARATE
     Indication: Multiple sclerosis
     Route: 048
     Dates: start: 20140129
  2. TECFIDERA [Suspect]
     Active Substance: DIMETHYL FUMARATE
     Dosage: MAINTENANCE DOSE
     Route: 048
     Dates: start: 20140221

REACTIONS (5)
  - Incoherent [Unknown]
  - Mobility decreased [Unknown]
  - Eyelid function disorder [Unknown]
  - Aphasia [Unknown]
  - Memory impairment [Unknown]

NARRATIVE: CASE EVENT DATE: 20211213
